FAERS Safety Report 24415746 (Version 2)
Quarter: 2025Q3

REPORT INFORMATION
  Report Type: Spontaneous
  Country: US (occurrence: US)
  Receive Date: 20241009
  Receipt Date: 20250726
  Transmission Date: 20251021
  Serious: Yes (Hospitalization, Other)
  Sender: ZYDUS PHARM
  Company Number: US-CADILA HEALTHCARE LIMITED-US-ZYDUS-112945

PATIENT

DRUGS (3)
  1. BACLOFEN [Suspect]
     Active Substance: BACLOFEN
     Indication: Multiple sclerosis
     Route: 037
  2. BACLOFEN [Suspect]
     Active Substance: BACLOFEN
     Route: 048
  3. DEXMEDETOMIDINE [Concomitant]
     Active Substance: DEXMEDETOMIDINE
     Indication: Sedation
     Route: 042

REACTIONS (5)
  - Cardiac arrest [Recovering/Resolving]
  - Electrocardiogram QT prolonged [Recovered/Resolved]
  - Mental status changes [Recovering/Resolving]
  - Overdose [Unknown]
  - Device malfunction [Unknown]
